FAERS Safety Report 8042278-1 (Version None)
Quarter: 2012Q1

REPORT INFORMATION
  Report Type: 
  Country: None (occurrence: None)
  Receive Date: 20120112
  Receipt Date: 20111101
  Transmission Date: 20120608
  Serious: Yes (Hospitalization, Other)
  Sender: FDA-Public Use
  Company Number: US-ROCHE-1008237

PATIENT
  Sex: Male

DRUGS (5)
  1. COLCHICINE [Concomitant]
  2. ALLOPURINOL [Concomitant]
  3. ZELBORAF [Suspect]
     Indication: PRODUCT USED FOR UNKNOWN INDICATION
     Dosage: UNKNOWN
     Route: 065
  4. SIMVASTATIN [Concomitant]
  5. RAPAFLO [Concomitant]

REACTIONS (8)
  - MENTAL STATUS CHANGES [None]
  - RESPIRATORY FAILURE [None]
  - HYPERBILIRUBINAEMIA [None]
  - HEPATIC FAILURE [None]
  - ENDOTRACHEAL INTUBATION [None]
  - PNEUMONIA [None]
  - UPPER GASTROINTESTINAL HAEMORRHAGE [None]
  - HEPATIC ENZYME INCREASED [None]
